FAERS Safety Report 14709727 (Version 4)
Quarter: 2019Q2

REPORT INFORMATION
  Report Type: Spontaneous
  Country: US (occurrence: US)
  Receive Date: 20180403
  Receipt Date: 20190624
  Transmission Date: 20190711
  Serious: Yes (Other)
  Sender: FDA-Public Use
  Company Number: US-SA-2018SA094014

PATIENT
  Age: 65 Year
  Sex: Female

DRUGS (2)
  1. LANTUS SOLOSTAR [Suspect]
     Active Substance: INSULIN GLARGINE
     Indication: TYPE 2 DIABETES MELLITUS
     Dosage: 44 DF,QD
     Route: 051
     Dates: start: 2016
  2. NOVOLOG [Concomitant]
     Active Substance: INSULIN ASPART
     Dosage: UNK UNK,UNK
     Route: 065

REACTIONS (7)
  - Cataract [Unknown]
  - Photosensitivity reaction [Unknown]
  - Injection site pain [Unknown]
  - Device use issue [Unknown]
  - Atrial fibrillation [Unknown]
  - Headache [Unknown]
  - Injection site vesicles [Recovering/Resolving]
